FAERS Safety Report 5929390-5 (Version None)
Quarter: 2008Q4

REPORT INFORMATION
  Report Type: 
  Country: None (occurrence: None)
  Receive Date: 20081024
  Receipt Date: 20081020
  Transmission Date: 20090506
  Serious: Yes (Death, Hospitalization)
  Sender: FDA-Public Use
  Company Number: US-ABBOTT-08P-163-0483014-01

PATIENT
  Sex: Male
  Weight: 108 kg

DRUGS (15)
  1. HUMIRA [Suspect]
     Indication: PSORIASIS
     Dosage: N/A
     Route: 058
     Dates: start: 20030713, end: 20080612
  2. VERAPAMIL [Concomitant]
     Indication: ATRIAL FIBRILLATION
     Dates: start: 20000101, end: 20080913
  3. DIGOXIN [Concomitant]
     Indication: ATRIAL FIBRILLATION
     Dates: start: 20000101, end: 20080913
  4. HYDROCHLOROTHIAZIDE [Concomitant]
     Indication: CARDIAC FAILURE CONGESTIVE
     Dates: start: 19810101, end: 20080913
  5. LISINOPRIL [Concomitant]
     Indication: HYPERTENSION
     Dates: start: 19810101, end: 20080913
  6. WARFARIN SODIUM [Concomitant]
     Indication: ATRIAL FIBRILLATION
     Dates: start: 20000101, end: 20080913
  7. WARFARIN SODIUM [Concomitant]
     Dates: start: 20000101, end: 20080913
  8. MULTI-VITAMIN [Concomitant]
     Indication: ROUTINE HEALTH MAINTENANCE
     Dates: end: 20080913
  9. VITAMIN B COMPLEX CAP [Concomitant]
     Indication: ROUTINE HEALTH MAINTENANCE
     Dates: end: 20080913
  10. ALLIUM SATIVUM [Concomitant]
     Indication: NEUROPATHY PERIPHERAL
     Dates: start: 19850101, end: 20080913
  11. LEVETIRACETAM [Concomitant]
     Indication: NEUROPATHY PERIPHERAL
     Dates: start: 20041103, end: 20080913
  12. ACETYLSALICYLIC ACID SRT [Concomitant]
     Indication: ATRIAL FIBRILLATION
     Dates: start: 19810101, end: 20080913
  13. FUROSEMIDE [Concomitant]
     Indication: CARDIAC FAILURE CONGESTIVE
     Dates: start: 19810101, end: 20080913
  14. POTASSIUM CHLORIDE [Concomitant]
     Indication: MINERAL SUPPLEMENTATION
     Dates: start: 19810101, end: 20080913
  15. TERAZOSIN HCL [Concomitant]
     Indication: HYPERTENSION
     Dates: start: 20000101, end: 20080913

REACTIONS (2)
  - BACK PAIN [None]
  - CORONARY ARTERY DISEASE [None]
